FAERS Safety Report 11066116 (Version 1)
Quarter: 2015Q2

REPORT INFORMATION
  Report Type: Spontaneous
  Country: DE (occurrence: None)
  Receive Date: 20150423
  Receipt Date: 20150423
  Transmission Date: 20150821
  Serious: Yes (Hospitalization)
  Sender: FDA-Public Use
  Company Number: INT_00737_2015

PATIENT
  Age: 66 Year
  Sex: Male

DRUGS (2)
  1. CISPLATIN (CISPLATIN) (HQ SPECIALTY) [Suspect]
     Active Substance: CISPLATIN
     Indication: TONSIL CANCER
     Dosage: 1X/WEEK , [40 MG/M2, TOTAL 73 MG, WEEKLY FOR 6 CYCLES])
  2. RADIATION THERAPY [Concomitant]
     Active Substance: RADIATION THERAPY

REACTIONS (11)
  - Aggression [None]
  - Suicidal ideation [None]
  - Irritability [None]
  - Cerebrovascular disorder [None]
  - Personality change [None]
  - Agitation [None]
  - Abnormal behaviour [None]
  - Anger [None]
  - Cerebral atrophy [None]
  - Emotional disorder [None]
  - Verbal abuse [None]
